FAERS Safety Report 9210221 (Version 4)
Quarter: 2013Q2

REPORT INFORMATION
  Report Type: Spontaneous
  Country: JP (occurrence: JP)
  Receive Date: 20130404
  Receipt Date: 20130612
  Transmission Date: 20140414
  Serious: Yes (Life-Threatening, Hospitalization, Other)
  Sender: FDA-Public Use
  Company Number: JP-ROCHE-1199737

PATIENT
  Age: 56 Year
  Sex: Female
  Weight: 37 kg

DRUGS (7)
  1. XELODA [Suspect]
     Indication: COLON CANCER
     Dosage: 2 WEEKS ADMINISTRATION FOLLOWED BY 1 WEEK REST
     Route: 048
     Dates: start: 20130214, end: 20130223
  2. MAXIPIME [Suspect]
     Indication: INFECTION
     Dosage: DOSAGE IS UNCERTAIN.
     Route: 042
     Dates: start: 20130301, end: 20130305
  3. TEICOPLANIN [Suspect]
     Indication: INFECTION
     Dosage: DOSAGE IS UNCERTAIN.
     Route: 041
     Dates: start: 20130304, end: 20130308
  4. FUNGUARD [Suspect]
     Indication: INFECTION
     Dosage: DOSAGE IS UNCERTAIN.
     Route: 041
     Dates: start: 20130305, end: 20130314
  5. MEROPEN [Suspect]
     Indication: INFECTION
     Route: 041
     Dates: start: 20130306, end: 20130312
  6. VANCOMYCIN HYDROCHLORIDE [Suspect]
     Indication: INFECTION
     Dosage: DOSAGE IS UNCERTAIN.
     Route: 048
     Dates: start: 20130307
  7. GLUFAST [Concomitant]
     Indication: DIABETES MELLITUS
     Route: 048
     Dates: start: 2013

REACTIONS (14)
  - Bone marrow failure [Recovered/Resolved]
  - Pancytopenia [Recovered/Resolved]
  - Infection [Recovered/Resolved]
  - Disseminated intravascular coagulation [Recovered/Resolved]
  - Gastrointestinal haemorrhage [Recovering/Resolving]
  - Stomatitis [Recovering/Resolving]
  - Diarrhoea [Recovered/Resolved]
  - Nausea [Recovered/Resolved]
  - Drug-induced liver injury [Unknown]
  - Leukoencephalopathy [Recovering/Resolving]
  - General physical health deterioration [Unknown]
  - Disuse syndrome [Recovering/Resolving]
  - Hypoaesthesia [Unknown]
  - Muscular weakness [Recovered/Resolved]
